FAERS Safety Report 20758086 (Version 7)
Quarter: 2025Q1

REPORT INFORMATION
  Report Type: Spontaneous
  Country: CA (occurrence: CA)
  Receive Date: 20220427
  Receipt Date: 20250207
  Transmission Date: 20250409
  Serious: Yes (Hospitalization)
  Sender: ROCHE
  Company Number: CA-ROCHE-3082041

PATIENT
  Age: 27 Year
  Sex: Female
  Weight: 120.0 kg

DRUGS (15)
  1. RITUXIMAB [Suspect]
     Active Substance: RITUXIMAB
     Indication: Systemic lupus erythematosus
     Route: 040
  2. RITUXIMAB [Suspect]
     Active Substance: RITUXIMAB
     Route: 040
  3. FERRIC POLYSACCHARIDE COMPLEX [Concomitant]
     Active Substance: FERRIC POLYSACCHARIDE COMPLEX
     Indication: Product used for unknown indication
     Route: 065
  4. SERTRALINE [Concomitant]
     Active Substance: SERTRALINE HYDROCHLORIDE
     Indication: Product used for unknown indication
     Route: 065
  5. AMLODIPINE [Concomitant]
     Active Substance: AMLODIPINE BESYLATE
     Indication: Hypertension
     Route: 048
  6. DIPHENHYDRAMINE [Concomitant]
     Active Substance: DIPHENHYDRAMINE
     Route: 048
  7. MYCOPHENOLATE SODIUM [Concomitant]
     Active Substance: MYCOPHENOLATE SODIUM
     Indication: Systemic lupus erythematosus
     Route: 048
  8. MYCOPHENOLATE SODIUM [Concomitant]
     Active Substance: MYCOPHENOLATE SODIUM
     Route: 048
  9. ACETAMINOPHEN [Concomitant]
     Active Substance: ACETAMINOPHEN
     Indication: Premedication
     Route: 048
  10. CALCIUM CARBONATE [Concomitant]
     Active Substance: CALCIUM CARBONATE
     Indication: Product used for unknown indication
     Route: 048
  11. CHOLECALCIFEROL [Concomitant]
     Active Substance: CHOLECALCIFEROL
     Indication: Product used for unknown indication
     Route: 048
  12. METHYLPREDNISOLONE SODIUM SUCCINATE [Concomitant]
     Active Substance: METHYLPREDNISOLONE SODIUM SUCCINATE
     Indication: Product used for unknown indication
  13. METHYLPREDNISOLONE SODIUM SUCCINATE [Concomitant]
     Active Substance: METHYLPREDNISOLONE SODIUM SUCCINATE
     Indication: Premedication
  14. FERRIC POLYSACCHARIDE COMPLEX [Concomitant]
     Active Substance: FERRIC POLYSACCHARIDE COMPLEX
  15. SERTRALINE [Concomitant]
     Active Substance: SERTRALINE HYDROCHLORIDE

REACTIONS (20)
  - Arthralgia [Recovered/Resolved]
  - Blood creatinine increased [Recovered/Resolved]
  - Blood urine present [Recovered/Resolved]
  - Butterfly rash [Recovered/Resolved]
  - C-reactive protein increased [Recovered/Resolved]
  - Central nervous system lupus [Recovered/Resolved]
  - Haemoglobin decreased [Recovered/Resolved]
  - Lupus nephritis [Recovered/Resolved]
  - Mouth ulceration [Recovered/Resolved]
  - Nephropathy [Recovered/Resolved]
  - Protein urine present [Recovered/Resolved]
  - Psychotic disorder [Recovered/Resolved]
  - Rash [Recovered/Resolved]
  - Red blood cell sedimentation rate increased [Recovered/Resolved]
  - Systemic lupus erythematosus [Recovered/Resolved]
  - Vasculitis [Recovered/Resolved]
  - Off label use [Unknown]
  - COVID-19 pneumonia [Recovered/Resolved]
  - Drug ineffective [Unknown]
  - Hospitalisation [Recovered/Resolved]
